FAERS Safety Report 9559304 (Version 1)
Quarter: 2013Q3

REPORT INFORMATION
  Report Type: Report from Study
  Country: BR (occurrence: BR)
  Receive Date: 20130927
  Receipt Date: 20130927
  Transmission Date: 20140515
  Serious: Yes (Hospitalization, Other)
  Sender: FDA-Public Use
  Company Number: PHHY2013BR105146

PATIENT
  Age: 37 Year
  Sex: Male

DRUGS (10)
  1. FORASEQ [Suspect]
     Indication: CHRONIC OBSTRUCTIVE PULMONARY DISEASE
     Dosage: 12/400  BID
     Dates: end: 201307
  2. PREDNISOLONE [Suspect]
     Dosage: 40 MG, PER DAY
  3. PREDNISOLONE [Suspect]
     Dosage: 20 MG PER DAY
  4. ROFLUMILAST [Suspect]
     Dosage: 500 MG, PER DAY
  5. MOMETASONE [Suspect]
     Dosage: 400 MG, PER DAY
  6. SALMETEROL/FLUTICASONPROPIONAAT [Suspect]
     Dosage: UNK UKN, UNK
  7. TIOTROPIUM BROMIDE [Concomitant]
     Indication: LUNG INFECTION
     Dosage: 5 MG,PER DAY
  8. SALBUTAMOL [Concomitant]
     Indication: PRIMARY CILIARY DYSKINESIA
     Dosage: UNK UKN, UNK
  9. N-ACETYLCYSTEINE [Concomitant]
     Indication: LUNG INFECTION
     Dosage: 60 MG, BID
  10. CORTICOSTEROIDS [Concomitant]
     Indication: LUNG INFECTION
     Dosage: 20 MG, UNK

REACTIONS (7)
  - Chronic obstructive pulmonary disease [Unknown]
  - Oxygen saturation decreased [Unknown]
  - Heart rate increased [Unknown]
  - Presyncope [Unknown]
  - Performance status decreased [Unknown]
  - Obstructive airways disorder [Unknown]
  - Vital capacity decreased [Unknown]
